FAERS Safety Report 5558293-3 (Version None)
Quarter: 2007Q4

REPORT INFORMATION
  Report Type: 
  Country: None (occurrence: None)
  Receive Date: 20071214
  Receipt Date: 20071203
  Transmission Date: 20080405
  Serious: Yes (Hospitalization)
  Sender: FDA-Public Use
  Company Number: ES-PFIZER INC-2007097588

PATIENT
  Age: 65 Year
  Sex: Male

DRUGS (5)
  1. ZYVOX [Suspect]
     Indication: SEPSIS
     Dosage: DAILY DOSE:1.2GRAM
     Route: 042
     Dates: start: 20070915, end: 20070922
  2. TAZOCEL [Suspect]
     Indication: SEPSIS
     Route: 042
     Dates: start: 20070915, end: 20070922
  3. ATROVENT [Concomitant]
     Dosage: DAILY DOSE:1.5MG
     Route: 055
  4. CLEXANE [Concomitant]
     Dosage: DAILY DOSE:20MG
     Route: 058
  5. LOSEC [Concomitant]
     Dosage: DAILY DOSE:40MG
     Route: 042

REACTIONS (2)
  - HAEMOPTYSIS [None]
  - THROMBOCYTOPENIA [None]
